FAERS Safety Report 14368368 (Version 1)
Quarter: 2018Q1

REPORT INFORMATION
  Report Type: Spontaneous
  Country: US (occurrence: US)
  Receive Date: 20180109
  Receipt Date: 20180109
  Transmission Date: 20180509
  Serious: Yes (Disabling)
  Sender: FDA-Public Use
  Company Number: US-ACELLA PHARMACEUTICALS, LLC-2039759

PATIENT
  Age: 65 Year
  Sex: Male

DRUGS (1)
  1. HYDROCODONE BITARTRATE AND CHLORPHENIRAMINE MALEATE [Suspect]
     Active Substance: CHLORPHENIRAMINE MALEATE\HYDROCODONE BITARTRATE
     Indication: PAIN
     Route: 048
     Dates: start: 2006

REACTIONS (1)
  - Gait inability [Recovering/Resolving]

NARRATIVE: CASE EVENT DATE: 2006
